FAERS Safety Report 5019597-6 (Version None)
Quarter: 2006Q2

REPORT INFORMATION
  Report Type: 
  Country: None (occurrence: None)
  Receive Date: 20060530
  Receipt Date: 20060516
  Transmission Date: 20061013
  Serious: Yes (Hospitalization)
  Sender: FDA-Public Use
  Company Number: CHPA2006US03909

PATIENT
  Age: 90 Year
  Sex: Female

DRUGS (2)
  1. GAS-X EXTSTR CHEW TABS PEPPERMINT CREME (NCH)(SIMETHICONE) CHEWABLE TA [Suspect]
     Indication: ABDOMINAL DISTENSION
     Dosage: 125 MG, ONCE/SINGLE, ORAL
     Route: 048
     Dates: start: 20060413, end: 20060413
  2. DRUG THERAPY NOS (DRUG THERAPY NOS) [Concomitant]

REACTIONS (2)
  - CARDIAC DISORDER [None]
  - HEART RATE INCREASED [None]
